FAERS Safety Report 6213396-5 (Version None)
Quarter: 2009Q2

REPORT INFORMATION
  Report Type: 
  Country: None (occurrence: None)
  Receive Date: 20090603
  Receipt Date: 20090518
  Transmission Date: 20091009
  Serious: Yes (Hospitalization)
  Sender: FDA-Public Use
  Company Number: NZ-MYLANLABS-2009S1008740

PATIENT
  Age: 83 Year
  Sex: Male

DRUGS (5)
  1. OMEPRAZOLE [Suspect]
     Route: 048
     Dates: start: 20050101, end: 20080101
  2. SIMVASTATIN [Concomitant]
     Indication: HYPOCHOLESTEROLAEMIA
     Dosage: L-TERM
     Route: 048
  3. DILTIAZEM [Concomitant]
     Dosage: L-TERM - CONT
     Route: 048
  4. PHENYTOIN [Concomitant]
     Indication: CONVULSION
     Route: 048
  5. COMBIVENT [Concomitant]
     Indication: DRUG USE FOR UNKNOWN INDICATION
     Route: 055

REACTIONS (1)
  - HYPOMAGNESAEMIA [None]
